FAERS Safety Report 6753111-X (Version None)
Quarter: 2010Q2

REPORT INFORMATION
  Report Type: 
  Country: None (occurrence: None)
  Receive Date: 20100603
  Receipt Date: 20100524
  Transmission Date: 20101027
  Serious: Yes (Other)
  Sender: FDA-Public Use
  Company Number: US-PFIZER INC-2010065734

PATIENT
  Sex: Male

DRUGS (2)
  1. LIPITOR [Suspect]
     Dosage: 40 MG, 2X/DAY
  2. VYTORIN [Concomitant]
     Dosage: UNK

REACTIONS (2)
  - ANGIOPLASTY [None]
  - MUSCULOSKELETAL STIFFNESS [None]
